FAERS Safety Report 4627182-0 (Version None)
Quarter: 2005Q2

REPORT INFORMATION
  Report Type: 
  Country: None (occurrence: None)
  Receive Date: 20050405
  Receipt Date: 20050325
  Transmission Date: 20051028
  Serious: Yes (Disabling)
  Sender: FDA-Public Use
  Company Number: JP-ROCHE-400236

PATIENT
  Age: 32 Year
  Sex: Male

DRUGS (3)
  1. TAMIFLU [Suspect]
     Indication: INFLUENZA
     Route: 048
     Dates: start: 20050318, end: 20050322
  2. ANHIBA [Concomitant]
     Route: 054
  3. SP [Concomitant]
     Dosage: FORMULATION: LOZENGE ROUTE: OROPHARINGEAL
     Route: 050

REACTIONS (4)
  - DRUG TOXICITY [None]
  - PAIN [None]
  - PAIN OF SKIN [None]
  - RASH [None]
